FAERS Safety Report 8654209 (Version 2)
Quarter: 2012Q4

REPORT INFORMATION
  Report Type: 
  Country: CA (occurrence: CA)
  Receive Date: 20120709
  Receipt Date: 20120906
  Transmission Date: 20130627
  Serious: No
  Sender: FDA-Public Use
  Company Number: PHHY2012CA058017

PATIENT
  Sex: Female

DRUGS (2)
  1. CLOZARIL [Suspect]
     Indication: SCHIZOPHRENIA
     Route: 048
     Dates: start: 2008
  2. CLOZARIL [Suspect]
     Dosage: 275 mg, UNK
     Route: 048

REACTIONS (2)
  - Stress [Recovered/Resolved]
  - Neutrophil count abnormal [Recovered/Resolved]
